FAERS Safety Report 4720617-4 (Version None)
Quarter: 2005Q3

REPORT INFORMATION
  Report Type: 
  Country: None (occurrence: None)
  Receive Date: 20050719
  Receipt Date: 20050705
  Transmission Date: 20060218
  Serious: Yes (Hospitalization)
  Sender: FDA-Public Use
  Company Number: 2005BI012852

PATIENT
  Age: 64 Year
  Sex: Female

DRUGS (1)
  1. AVONEX [Suspect]
     Indication: MULTIPLE SCLEROSIS
     Dosage: 230 UG;QW; IM
     Route: 030
     Dates: start: 20040126

REACTIONS (4)
  - BLADDER DISORDER [None]
  - DEHYDRATION [None]
  - MALAISE [None]
  - WEIGHT DECREASED [None]
